FAERS Safety Report 8234759-2 (Version None)
Quarter: 2012Q1

REPORT INFORMATION
  Report Type: 
  Country: None (occurrence: None)
  Receive Date: 20120326
  Receipt Date: 20120312
  Transmission Date: 20120608
  Serious: Yes (Other)
  Sender: FDA-Public Use
  Company Number: US-SANOFI-AVENTIS-2012SA017528

PATIENT
  Age: 70 Year
  Sex: Male

DRUGS (5)
  1. ATIVAN [Suspect]
  2. FEXOFENADINE [Suspect]
  3. AMBIEN [Suspect]
  4. TEGRETOL [Suspect]
  5. ALL OTHER THERAPEUTIC PRODUCTS [Concomitant]

REACTIONS (7)
  - HEART RATE IRREGULAR [None]
  - SLEEP DISORDER [None]
  - RESPIRATION ABNORMAL [None]
  - BLOOD PRESSURE INCREASED [None]
  - PULSE ABNORMAL [None]
  - BRONCHITIS [None]
  - FATIGUE [None]
